FAERS Safety Report 25276893 (Version 1)
Quarter: 2025Q2

REPORT INFORMATION
  Report Type: Spontaneous
  Country: CN (occurrence: CN)
  Receive Date: 20250507
  Receipt Date: 20250507
  Transmission Date: 20250716
  Serious: Yes (Hospitalization, Other)
  Sender: BAXTER
  Company Number: None

PATIENT
  Age: 36 Year
  Sex: Female
  Weight: 65 kg

DRUGS (4)
  1. CYCLOPHOSPHAMIDE [Suspect]
     Active Substance: CYCLOPHOSPHAMIDE
     Indication: Breast cancer female
     Dosage: 0.9 G, QD
     Route: 041
     Dates: start: 20250417, end: 20250417
  2. EPIRUBICIN [Suspect]
     Active Substance: EPIRUBICIN
     Indication: Breast cancer female
     Dosage: 145 MG, QD
     Route: 041
     Dates: start: 20250417, end: 20250417
  3. SODIUM CHLORIDE [Suspect]
     Active Substance: SODIUM CHLORIDE
     Indication: Breast cancer female
     Dosage: 100 ML, QD, (WITH EPIRUBICIN)
     Route: 041
     Dates: start: 20250417, end: 20250417
  4. SODIUM CHLORIDE [Suspect]
     Active Substance: SODIUM CHLORIDE
     Dosage: 100 ML, QD, (WITH CYCLOPHOSPHAMIDE)
     Route: 041
     Dates: start: 20250417, end: 20250417

REACTIONS (14)
  - Oedema peripheral [Recovering/Resolving]
  - Chest discomfort [Unknown]
  - Asphyxia [Unknown]
  - Upper respiratory tract infection [Recovering/Resolving]
  - Neuropathy peripheral [Recovering/Resolving]
  - White blood cell count decreased [Recovering/Resolving]
  - Neutrophil count decreased [Recovering/Resolving]
  - Pyrexia [Unknown]
  - Asthenia [Unknown]
  - Headache [Unknown]
  - Muscular weakness [Unknown]
  - Sodium retention [Unknown]
  - Fluid retention [Unknown]
  - Arthralgia [Unknown]

NARRATIVE: CASE EVENT DATE: 20250418
